FAERS Safety Report 9543527 (Version 4)
Quarter: 2016Q2

REPORT INFORMATION
  Report Type: Spontaneous
  Country: US (occurrence: US)
  Receive Date: 20130923
  Receipt Date: 20160401
  Transmission Date: 20160815
  Serious: Yes (Other)
  Sender: FDA-Public Use
  Company Number: US-PFIZER INC-2013272615

PATIENT
  Age: 52 Year
  Sex: Male
  Weight: 81 kg

DRUGS (30)
  1. ALBUTEROL HFA [Concomitant]
     Active Substance: ALBUTEROL SULFATE
     Indication: WHEEZING
     Dosage: 2 DF, AS NEEDED
  2. IBUPROFEN. [Concomitant]
     Active Substance: IBUPROFEN
     Indication: ARTHRITIS
     Dosage: 600 MG, AS NEEDED (1 TABLET AS NEEDED 3 TIMES A DAY)
     Route: 048
  3. ZOFRAN [Concomitant]
     Active Substance: ONDANSETRON HYDROCHLORIDE
     Indication: NAUSEA
     Dosage: 4 MG, AS NEEDED (ONE TABLET THREE TIMES DAILY AS NEEDED)
     Route: 048
  4. RELPAX [Suspect]
     Active Substance: ELETRIPTAN HYDROBROMIDE
     Indication: MIGRAINE
     Dosage: 40 MG, AS NEEDED AT ONSET OF HEADACHE, MIGHT REPEAT IN 2 HRS IF NEEDED (NO MORE THAN 2 PER 24H)
     Route: 048
     Dates: start: 2012
  5. DUONEB [Concomitant]
     Active Substance: ALBUTEROL SULFATE\IPRATROPIUM BROMIDE
     Dosage: 3 ML, 4X/DAY
     Route: 055
  6. ASPIRIN. [Concomitant]
     Active Substance: ASPIRIN
     Indication: HEADACHE
     Dosage: 325 MG, ONCE A DAY 2-3 TIMES PER WEEK PRN
     Route: 048
  7. REGLAN [Concomitant]
     Active Substance: METOCLOPRAMIDE HYDROCHLORIDE
     Indication: NAUSEA
     Dosage: 10 MG, AS NEEDED (1 TABLET AS NEEDED 3 TIMES A DAY)
     Route: 048
  8. PROAIR HFA [Concomitant]
     Active Substance: ALBUTEROL SULFATE
     Indication: WHEEZING
     Dosage: 2 PUFFS AS NEEDED 4 TIMES A DAY PRN
     Route: 055
  9. ALBUTEROL. [Concomitant]
     Active Substance: ALBUTEROL
     Indication: WHEEZING
     Dosage: 3 ML AS NEEDED EVERY 6 HOURS PRN
  10. EXCEDRIN [Concomitant]
     Active Substance: ACETAMINOPHEN\ASPIRIN\CAFFEINE
     Indication: MIGRAINE
     Dosage: 1/2 TAB AS NEEDED
     Route: 048
  11. VITAMIN D3 [Concomitant]
     Active Substance: CHOLECALCIFEROL
     Dosage: 2000 IU (1 TABLET), 1X/DAY
     Route: 048
  12. ADVAIR DISKUS [Concomitant]
     Active Substance: FLUTICASONE PROPIONATE\SALMETEROL XINAFOATE
     Dosage: 1 DF, 2X/DAY
     Route: 055
  13. ADVAIR HFA [Concomitant]
     Active Substance: FLUTICASONE PROPIONATE\SALMETEROL XINAFOATE
     Dosage: 1 DF, 2X/DAY
  14. LANTUS [Concomitant]
     Active Substance: INSULIN GLARGINE
     Dosage: 10 DF (UNITS), 1X/DAY
     Route: 058
  15. MEDROL [Concomitant]
     Active Substance: METHYLPREDNISOLONE
     Dosage: 4 MG, 1X/DAY
     Route: 048
  16. RIZATRIPTAN BENZOATE. [Concomitant]
     Active Substance: RIZATRIPTAN BENZOATE
     Indication: MIGRAINE
     Dosage: 10 MG (1 TABLET), AS NEEDED (ONCE)
     Route: 048
  17. OXYCODONE [Concomitant]
     Active Substance: OXYCODONE
     Indication: PAIN IN EXTREMITY
     Dosage: 5 MG, AS NEEDED (1-2 TABLETS AS NEEDED 3 TIMES A DAY)
     Route: 048
     Dates: start: 20160106
  18. OMEPRAZOLE. [Concomitant]
     Active Substance: OMEPRAZOLE
     Indication: GASTROOESOPHAGEAL REFLUX DISEASE
     Dosage: 20 MG, AS NEEDED (ONCE A DAY)
     Route: 048
  19. GLUCOTROL XL [Concomitant]
     Active Substance: GLIPIZIDE
     Dosage: 20 MG (2 TABLETS), DAILY
     Route: 048
  20. LIPITOR [Concomitant]
     Active Substance: ATORVASTATIN CALCIUM
     Dosage: 20 MG, 1X/DAY
     Route: 048
  21. SINGULAIR [Concomitant]
     Active Substance: MONTELUKAST SODIUM
     Dosage: 10 MG (1 TABLET), 1/DAY IN THE PM
     Route: 048
  22. PREDNISONE. [Concomitant]
     Active Substance: PREDNISONE
     Dosage: 20 MG (1 TABLET), AS NEEDED (ONCE A DAY)
     Route: 048
  23. COMPAZINE [Concomitant]
     Active Substance: PROCHLORPERAZINE MALEATE
     Dosage: 10 MG (1 TABLET), AS NEEDED (3 TIMES A DAY)
     Route: 048
  24. MEDROL [Concomitant]
     Active Substance: METHYLPREDNISOLONE
     Dosage: 1 PACKET ONCE ORALLY AS DIRECTED ON PACKAGE LABELING
     Route: 048
  25. DEPAKOTE [Concomitant]
     Active Substance: DIVALPROEX SODIUM
     Dosage: 1500 MG (3 TABLETS), DAILY (AT BEDTIME)
     Route: 048
  26. GLUCOPHAGE [Concomitant]
     Active Substance: METFORMIN HYDROCHLORIDE
     Dosage: 2000 MG (2 TABLETS), DAILY
     Route: 048
  27. REGLAN [Concomitant]
     Active Substance: METOCLOPRAMIDE HYDROCHLORIDE
     Indication: VOMITING
  28. NEURONTIN [Concomitant]
     Active Substance: GABAPENTIN
     Dosage: ONE CAPSULE OF 300 MG EVERY MORNIN AND TWO EVERY EVENING
     Route: 048
  29. OXYCODONE [Concomitant]
     Active Substance: OXYCODONE
     Dosage: 5 MG, AS NEEDED (1-2 TABLETS AS NEEDED 3 TIMES A DAY)
     Route: 048
     Dates: start: 20160205
  30. LANTUS SOLOSTAR [Concomitant]
     Active Substance: INSULIN GLARGINE
     Dosage: 10 DF (UNITS), 1X/DAY
     Route: 058

REACTIONS (2)
  - Migraine [Not Recovered/Not Resolved]
  - Condition aggravated [Not Recovered/Not Resolved]

NARRATIVE: CASE EVENT DATE: 2013
